FAERS Safety Report 7871664-5 (Version None)
Quarter: 2011Q4

REPORT INFORMATION
  Report Type: 
  Country: None (occurrence: None)
  Receive Date: 20111029
  Receipt Date: 20110307
  Transmission Date: 20120403
  Serious: No
  Sender: FDA-Public Use
  Company Number: US-AMGEN-USASP2011012644

PATIENT
  Age: 29 Year
  Sex: Female

DRUGS (1)
  1. ENBREL [Suspect]
     Indication: PSORIATIC ARTHROPATHY
     Dosage: 50 MG, QWK
     Dates: start: 20100101

REACTIONS (6)
  - EAR INFECTION [None]
  - UPPER RESPIRATORY TRACT INFECTION [None]
  - GASTROENTERITIS [None]
  - PHARYNGITIS STREPTOCOCCAL [None]
  - SINUSITIS [None]
  - NEPHROLITHIASIS [None]
